FAERS Safety Report 25860819 (Version 1)
Quarter: 2025Q3

REPORT INFORMATION
  Report Type: Spontaneous
  Country: US (occurrence: US)
  Receive Date: 20250929
  Receipt Date: 20250929
  Transmission Date: 20251020
  Serious: No
  Sender: SANOFI AVENTIS
  Company Number: US-SA-2025SA289703

PATIENT
  Sex: Female
  Weight: 76.82 kg

DRUGS (6)
  1. DUPIXENT [Suspect]
     Active Substance: DUPILUMAB
     Indication: Dermatitis atopic
     Dosage: 300 MG, QOW
     Route: 058
  2. CLARITIN [Concomitant]
     Active Substance: LORATADINE
  3. BETAMETHASONE DIPROPIONATE AUGMENTED [Concomitant]
     Active Substance: BETAMETHASONE DIPROPIONATE
  4. DESONIDE [Concomitant]
     Active Substance: DESONIDE
  5. RINVOQ [Concomitant]
     Active Substance: UPADACITINIB
  6. ST. JOHN^S WORT [Concomitant]
     Active Substance: ST. JOHN^S WORT

REACTIONS (1)
  - Drug ineffective [Unknown]
